FAERS Safety Report 8294435-7 (Version None)
Quarter: 2012Q2

REPORT INFORMATION
  Report Type: 
  Country: None (occurrence: None)
  Receive Date: 20120418
  Receipt Date: 20120410
  Transmission Date: 20120825
  Serious: Yes (Hospitalization, Other)
  Sender: FDA-Public Use
  Company Number: RU-GENZYME-FABR-1002431

PATIENT
  Sex: Male

DRUGS (9)
  1. CALCIUM D3 [Concomitant]
     Indication: PRODUCT USED FOR UNKNOWN INDICATION
     Dosage: UNK
     Route: 065
  2. FABRAZYME [Suspect]
     Indication: FABRY'S DISEASE
     Dosage: 1 VIAL, Q2W
     Route: 042
     Dates: start: 20110301, end: 20110701
  3. OMEPRAZOLE [Concomitant]
     Indication: PRODUCT USED FOR UNKNOWN INDICATION
     Dosage: 20 MG, BID
     Route: 065
  4. ASPARCAM [Concomitant]
     Indication: PRODUCT USED FOR UNKNOWN INDICATION
     Dosage: 1 PILL QD X 4
     Route: 065
  5. FABRAZYME [Suspect]
     Dosage: 1 MG/KG, Q2W
     Route: 042
     Dates: start: 20070101, end: 20070901
  6. FABRAZYME [Suspect]
     Dosage: 2 VIALS, Q2W
     Route: 042
     Dates: start: 20111001
  7. TESTOSTERONE PHENYL PROPIONATE INJ [Concomitant]
     Indication: PRODUCT USED FOR UNKNOWN INDICATION
     Dosage: 250 MG, Q30D
     Route: 030
  8. FABRAZYME [Suspect]
     Dosage: 1 MG/KG, Q2W
     Route: 042
     Dates: start: 20071101, end: 20110301
  9. PREDNISOLONE [Concomitant]
     Indication: PRODUCT USED FOR UNKNOWN INDICATION
     Dosage: 5/15 MG, QD
     Route: 065

REACTIONS (5)
  - HYPERTENSION [None]
  - PARAESTHESIA [None]
  - PYREXIA [None]
  - HOSPITALISATION [None]
  - PAIN IN EXTREMITY [None]
